FAERS Safety Report 10459062 (Version 1)
Quarter: 2014Q3

REPORT INFORMATION
  Report Type: Spontaneous
  Country: US (occurrence: None)
  Receive Date: 20140916
  Receipt Date: 20140916
  Transmission Date: 20150326
  Serious: Yes (Hospitalization)
  Sender: FDA-Public Use
  Company Number: None

PATIENT
  Age: 67 Year
  Sex: Female

DRUGS (2)
  1. SUTENT [Suspect]
     Active Substance: SUNITINIB MALATE
     Indication: RENAL CANCER
     Route: 048
     Dates: start: 20120619, end: 20140730
  2. SUTENT [Suspect]
     Active Substance: SUNITINIB MALATE
     Indication: COLON CANCER
     Route: 048
     Dates: start: 20120619, end: 20140730

REACTIONS (5)
  - Skin graft [None]
  - Wrong technique in drug usage process [None]
  - Gallbladder disorder [None]
  - Chemical injury [None]
  - Sepsis [None]

NARRATIVE: CASE EVENT DATE: 20140730
